FAERS Safety Report 5669328-1 (Version None)
Quarter: 2008Q1

REPORT INFORMATION
  Report Type: 
  Country: None (occurrence: None)
  Receive Date: 20080317
  Receipt Date: 20080311
  Transmission Date: 20080703
  Serious: Yes (Other)
  Sender: FDA-Public Use
  Company Number: PHBS2007BR16336

PATIENT
  Age: 87 Year
  Sex: Female

DRUGS (4)
  1. STARFORM [Suspect]
     Indication: DIABETES MELLITUS
     Route: 048
  2. GALVUS [Suspect]
     Indication: DIABETES MELLITUS
     Dosage: 100 MG, UNK
  3. METFORMIN [Suspect]
     Indication: DIABETES MELLITUS
     Dosage: 850 MG, UNK
  4. DIOVAN [Concomitant]

REACTIONS (4)
  - ABDOMINAL PAIN UPPER [None]
  - APATHY [None]
  - DEPRESSION [None]
  - NAUSEA [None]
